FAERS Safety Report 13101199 (Version 2)
Quarter: 2017Q1

REPORT INFORMATION
  Report Type: Spontaneous
  Country: GB (occurrence: GB)
  Receive Date: 20170110
  Receipt Date: 20170111
  Transmission Date: 20170428
  Serious: Yes (Other)
  Sender: FDA-Public Use
  Company Number: GB-PFIZER INC-2016513313

PATIENT
  Age: 80 Year
  Sex: Male
  Weight: 80 kg

DRUGS (1)
  1. NEURONTIN [Suspect]
     Active Substance: GABAPENTIN
     Indication: NEUROPATHY PERIPHERAL
     Dosage: 900 MG, DAILY
     Route: 048
     Dates: start: 2000, end: 2016

REACTIONS (3)
  - Male genital atrophy [Recovering/Resolving]
  - Micturition disorder [Recovering/Resolving]
  - Urinary incontinence [Recovering/Resolving]

NARRATIVE: CASE EVENT DATE: 2016
